FAERS Safety Report 7408358-6 (Version None)
Quarter: 2011Q2

REPORT INFORMATION
  Report Type: 
  Country: None (occurrence: None)
  Receive Date: 20110412
  Receipt Date: 20110407
  Transmission Date: 20111010
  Serious: Yes (Disabling)
  Sender: FDA-Public Use
  Company Number: DE-SANOFI-AVENTIS-2010SA056196

PATIENT
  Age: 80 Year
  Sex: Male
  Weight: 78 kg

DRUGS (6)
  1. AGGRENOX [Concomitant]
     Route: 048
  2. KETEK [Suspect]
     Route: 048
     Dates: start: 20100801
  3. TAVANIC [Suspect]
     Route: 048
     Dates: start: 20100801
  4. IBU ^RATIOPHARM^ [Concomitant]
     Route: 048
  5. XUSAL [Concomitant]
     Route: 048
  6. ACETYLCYSTEINE [Concomitant]
     Indication: BRONCHITIS
     Dosage: DOSAGE: 1/2-0-1/2 DAILY
     Route: 048
     Dates: start: 20100816, end: 20100821

REACTIONS (3)
  - DRY MOUTH [None]
  - DYSGEUSIA [None]
  - DRUG INEFFECTIVE [None]
